FAERS Safety Report 14693291 (Version 3)
Quarter: 2018Q2

REPORT INFORMATION
  Report Type: Spontaneous
  Country: FR (occurrence: FR)
  Receive Date: 20180329
  Receipt Date: 20180626
  Transmission Date: 20180711
  Serious: Yes (Hospitalization)
  Sender: FDA-Public Use
  Company Number: FR-AUROBINDO-AUR-APL-2018-016600

PATIENT
  Age: 100 Year
  Sex: Female
  Weight: 73 kg

DRUGS (30)
  1. PARACETAMOL [Concomitant]
     Active Substance: ACETAMINOPHEN
     Dosage: 2 DF, 1X/DAY
  2. LEVOTHYROX [Concomitant]
     Active Substance: LEVOTHYROXINE
     Dosage: 1 DF, 1X/DAY (MORNING)
     Route: 065
     Dates: start: 20080101
  3. XANAX [Concomitant]
     Active Substance: ALPRAZOLAM
     Indication: PRODUCT USED FOR UNKNOWN INDICATION
     Dosage: 1 MORNING, 1 NOON, 2 EVENING
     Route: 065
     Dates: start: 20170628
  4. LASILIX                            /00032601/ [Concomitant]
     Active Substance: FUROSEMIDE
     Indication: PRODUCT USED FOR UNKNOWN INDICATION
     Dosage: ()
     Route: 065
  5. DUROGESIC [Concomitant]
     Active Substance: FENTANYL
     Indication: PRODUCT USED FOR UNKNOWN INDICATION
     Route: 065
  6. SPIRONOLACTONE. [Suspect]
     Active Substance: SPIRONOLACTONE
     Indication: PRODUCT USED FOR UNKNOWN INDICATION
     Dosage: 1 DF, SINGLE ; IN TOTAL
     Route: 048
     Dates: start: 20170628, end: 20170628
  7. PARACETAMOL [Concomitant]
     Active Substance: ACETAMINOPHEN
     Indication: PRODUCT USED FOR UNKNOWN INDICATION
     Dosage: ()
     Route: 065
  8. SKENAN [Concomitant]
     Active Substance: MORPHINE SULFATE
     Dosage: 1 DF, 1X/DAY (EVENING)
     Route: 065
  9. SKENAN [Concomitant]
     Active Substance: MORPHINE SULFATE
     Dosage: 1 DF, 1X/DAY (EVENING)
     Route: 065
  10. ADANCOR [Suspect]
     Active Substance: NICORANDIL
     Indication: PRODUCT USED FOR UNKNOWN INDICATION
     Dosage: 10.0MG ONCE/SINGLE ADMINISTRATION
     Route: 048
     Dates: start: 20170628, end: 20170628
  11. NAFTIDROFURYL [Concomitant]
     Active Substance: NAFRONYL
     Indication: PRODUCT USED FOR UNKNOWN INDICATION
     Dosage: 200 MG, UNK
     Route: 065
     Dates: start: 20170628
  12. FORLAX [Concomitant]
     Active Substance: POLYETHYLENE GLYCOL 4000
     Dosage: 1 DF, 1X/DAY (MORNING)
     Route: 065
  13. LEVOTHYROX [Concomitant]
     Active Substance: LEVOTHYROXINE
     Indication: PRODUCT USED FOR UNKNOWN INDICATION
     Dosage: ()
     Route: 065
     Dates: start: 2008
  14. DUROGESIC [Concomitant]
     Active Substance: FENTANYL
     Dosage: 1 PATCH PER 72 HOURS
     Route: 065
  15. PERINDOPRIL [Suspect]
     Active Substance: PERINDOPRIL
     Indication: PRODUCT USED FOR UNKNOWN INDICATION
     Dosage: 8.0MG ONCE/SINGLE ADMINISTRATION
     Route: 048
     Dates: start: 20170628, end: 20170628
  16. AMIODARONE [Suspect]
     Active Substance: AMIODARONE
     Indication: ATRIAL FIBRILLATION
     Dosage: 200 MG, 1X/DAY (MORNING)
     Route: 048
     Dates: start: 20170628
  17. ESIDREX [Suspect]
     Active Substance: HYDROCHLOROTHIAZIDE
     Indication: PRODUCT USED FOR UNKNOWN INDICATION
     Dosage: 25.0MG ONCE/SINGLE ADMINISTRATION ; IN TOTAL
     Route: 048
     Dates: start: 20170628, end: 20170628
  18. PARACETAMOL [Concomitant]
     Active Substance: ACETAMINOPHEN
     Route: 065
  19. DUROGESIC [Concomitant]
     Active Substance: FENTANYL
     Dosage: 1 PATCH PER 72 HOURS
     Route: 065
  20. CARDENSIEL [Concomitant]
     Active Substance: BISOPROLOL FUMARATE
     Indication: PRODUCT USED FOR UNKNOWN INDICATION
     Dosage: ()
     Route: 065
  21. CARDENSIEL [Concomitant]
     Active Substance: BISOPROLOL FUMARATE
     Dosage: 1 DF, 1X/DAY (MORNING)
     Route: 065
  22. ATENOLOL. [Suspect]
     Active Substance: ATENOLOL
     Indication: PRODUCT USED FOR UNKNOWN INDICATION
     Dosage: 10 MG, SINGLE
     Route: 048
     Dates: start: 20170628, end: 20170628
  23. AMLOR [Suspect]
     Active Substance: AMLODIPINE BESYLATE
     Indication: PRODUCT USED FOR UNKNOWN INDICATION
     Dosage: 10.0MG ONCE/SINGLE ADMINISTRATION ; IN TOTAL
     Route: 048
     Dates: start: 20170628, end: 20170628
  24. ALDACTONE [Concomitant]
     Active Substance: SPIRONOLACTONE
     Indication: PRODUCT USED FOR UNKNOWN INDICATION
     Dosage: ()
     Route: 065
  25. PARACETAMOL [Concomitant]
     Active Substance: ACETAMINOPHEN
     Dosage: 2 DF, 1X/DAY
  26. NOVONORM [Suspect]
     Active Substance: REPAGLINIDE
     Indication: PRODUCT USED FOR UNKNOWN INDICATION
     Dosage: 1.0MG ONCE/SINGLE ADMINISTRATION ; IN TOTAL
     Route: 048
     Dates: start: 20170628, end: 20170628
  27. FORLAX [Concomitant]
     Active Substance: POLYETHYLENE GLYCOL 4000
     Indication: PRODUCT USED FOR UNKNOWN INDICATION
     Dosage: ()
     Route: 065
  28. FORLAX [Concomitant]
     Active Substance: POLYETHYLENE GLYCOL 4000
     Dosage: 1 DF, 1X/DAY (MORNING)
     Route: 065
  29. SKENAN [Concomitant]
     Active Substance: MORPHINE SULFATE
     Indication: PRODUCT USED FOR UNKNOWN INDICATION
     Dosage: ()
     Route: 065
  30. CARDENSIEL [Concomitant]
     Active Substance: BISOPROLOL FUMARATE
     Dosage: 1 DF, 1X/DAY (MORNING)
     Route: 065

REACTIONS (6)
  - Wrong patient received medication [Unknown]
  - Hypotension [Recovered/Resolved]
  - Hypoglycaemia [Recovered/Resolved]
  - Bradycardia [Recovered/Resolved]
  - Acute kidney injury [Recovered/Resolved]
  - Coma scale abnormal [Unknown]

NARRATIVE: CASE EVENT DATE: 20170628
